FAERS Safety Report 5850720-7 (Version None)
Quarter: 2008Q3

REPORT INFORMATION
  Report Type: 
  Country: None (occurrence: None)
  Receive Date: 20080818
  Receipt Date: 20080812
  Transmission Date: 20090109
  Serious: Yes (Hospitalization)
  Sender: FDA-Public Use
  Company Number: 2008SP016200

PATIENT
  Age: 59 Year
  Sex: Male
  Weight: 74.8 kg

DRUGS (7)
  1. VIRAFERONPEG [Suspect]
     Indication: HEPATITIS C
     Dosage: 0.5 MCG/KG/ QW;
     Dates: start: 20061012, end: 20070701
  2. BLINDED PEGINTERFERON ALFA-2B (S-P) [Suspect]
     Indication: HEPATITIS C
     Dosage: 1000 MG; AD; 1000 MG; QD
     Dates: start: 20061012, end: 20070701
  3. BLINDED PEGINTERFERON ALFA-2B (S-P) [Suspect]
     Indication: HEPATITIS C
     Dosage: 1000 MG; AD; 1000 MG; QD
     Dates: start: 20071105
  4. RADIOFREQUENCY (RADIATION THERAPY) (THERAPEUTIC RADIOPHARMACEUTICALS) [Suspect]
     Indication: HEPATIC NEOPLASM MALIGNANT
     Dates: start: 20080415, end: 20080415
  5. VENTOLINE (CON.) [Concomitant]
  6. SERETIDE (CON.) [Concomitant]
  7. SPIRIVA (CON.) [Concomitant]

REACTIONS (2)
  - HEPATIC HAEMATOMA [None]
  - HEPATIC NEOPLASM MALIGNANT [None]
